FAERS Safety Report 21198512 (Version 1)
Quarter: 2022Q3

REPORT INFORMATION
  Report Type: Spontaneous
  Country: US (occurrence: US)
  Receive Date: 20220811
  Receipt Date: 20220811
  Transmission Date: 20221026
  Serious: Yes (Hospitalization, Other)
  Sender: FDA-Public Use
  Company Number: US-BRISTOL-MYERS SQUIBB COMPANY-2022-084057

PATIENT
  Age: 78 Year
  Sex: Female
  Weight: 44 kg

DRUGS (2)
  1. NIVOLUMAB [Suspect]
     Active Substance: NIVOLUMAB
     Indication: Non-small cell lung cancer
     Dosage: EVERY 2 WEEKS
     Route: 042
     Dates: start: 20220720
  2. IPILIMUMAB [Suspect]
     Active Substance: IPILIMUMAB
     Indication: Non-small cell lung cancer
     Dosage: EVERY 6 WEEKS
     Route: 042
     Dates: start: 20220720

REACTIONS (4)
  - Nephritis [Unknown]
  - Acute kidney injury [Unknown]
  - Anxiety [Unknown]
  - Intentional product use issue [Unknown]

NARRATIVE: CASE EVENT DATE: 20220801
